FAERS Safety Report 12413572 (Version 1)
Quarter: 2016Q2

REPORT INFORMATION
  Report Type: Spontaneous
  Country: US (occurrence: US)
  Receive Date: 20160527
  Receipt Date: 20160527
  Transmission Date: 20160815
  Serious: Yes (Other)
  Sender: FDA-Public Use
  Company Number: US-MYLANLABS-2016M1021959

PATIENT

DRUGS (2)
  1. MOTRIN [Concomitant]
     Active Substance: IBUPROFEN
     Dosage: 800 MG, PRN
     Route: 048
     Dates: start: 1992
  2. FENTANYL TRANSDERMAL SYSTEM [Suspect]
     Active Substance: FENTANYL
     Indication: NERVE INJURY
     Dosage: 100 ?G/ QH, CHANGES Q48H
     Route: 062
     Dates: start: 2011

REACTIONS (2)
  - Abdominal pain [Not Recovered/Not Resolved]
  - Cholangitis [Not Recovered/Not Resolved]
